FAERS Safety Report 7000293-0 (Version None)
Quarter: 2010Q3

REPORT INFORMATION
  Report Type: 
  Country: None (occurrence: None)
  Receive Date: 20100920
  Receipt Date: 20100303
  Transmission Date: 20110219
  Serious: Yes (Hospitalization)
  Sender: FDA-Public Use
  Company Number: US-ASTRAZENECA-2010SE09399

PATIENT
  Age: 16 Year
  Sex: Male
  Weight: 91.2 kg

DRUGS (1)
  1. SEROQUEL XR [Suspect]
     Dosage: 10-14 TABLETS ONCE
     Route: 048

REACTIONS (1)
  - INTENTIONAL OVERDOSE [None]
